FAERS Safety Report 16347067 (Version 1)
Quarter: 2019Q2

REPORT INFORMATION
  Report Type: Spontaneous
  Country: US (occurrence: US)
  Receive Date: 20190523
  Receipt Date: 20190523
  Transmission Date: 20190711
  Serious: No
  Sender: FDA-Public Use
  Company Number: US-TARO-2018TAR00509

PATIENT
  Age: 50 Year
  Sex: Male
  Weight: 77.1 kg

DRUGS (7)
  1. IMIQUIMOD CREAM 5% [Suspect]
     Active Substance: IMIQUIMOD
     Dosage: ONE PACKET TO THREE UP TO 3X/DAY
     Route: 061
     Dates: start: 2018
  2. MORPHINE [Concomitant]
     Active Substance: MORPHINE
  3. KLONOPIN [Concomitant]
     Active Substance: CLONAZEPAM
  4. TIZANIDINE. [Concomitant]
     Active Substance: TIZANIDINE
  5. FENTANYL. [Concomitant]
     Active Substance: FENTANYL
     Route: 061
  6. IMIQUIMOD CREAM 5% [Suspect]
     Active Substance: IMIQUIMOD
     Indication: ANOGENITAL WARTS
     Dosage: ONE PACKET TO THREE WARTS, 3X/WEEK
     Route: 061
     Dates: start: 20180627, end: 2018
  7. OXYCODONE [Concomitant]
     Active Substance: OXYCODONE

REACTIONS (3)
  - Skin erosion [Recovered/Resolved]
  - Drug ineffective [Not Recovered/Not Resolved]
  - Intentional product use issue [Not Recovered/Not Resolved]

NARRATIVE: CASE EVENT DATE: 2018
